FAERS Safety Report 6715794-X (Version None)
Quarter: 2010Q2

REPORT INFORMATION
  Report Type: 
  Country: None (occurrence: None)
  Receive Date: 20100507
  Receipt Date: 20100426
  Transmission Date: 20101027
  Serious: Yes (Hospitalization)
  Sender: FDA-Public Use
  Company Number: TR-ELI_LILLY_AND_COMPANY-TR201004006805

PATIENT

DRUGS (2)
  1. HUMULIN N [Suspect]
     Dosage: 8 U, EACH EVENING
     Route: 064
     Dates: start: 20091201, end: 20100102
  2. HUMULIN R [Suspect]
     Dosage: 6 U, 3/D
     Route: 064
     Dates: start: 20091201, end: 20100102

REACTIONS (3)
  - BRONCHITIS [None]
  - DRUG EXPOSURE DURING PREGNANCY [None]
  - PREMATURE BABY [None]
